FAERS Safety Report 8515380-5 (Version None)
Quarter: 2012Q3

REPORT INFORMATION
  Report Type: 
  Country: None (occurrence: None)
  Receive Date: 20120717
  Receipt Date: 20120703
  Transmission Date: 20120928
  Serious: Yes (Hospitalization)
  Sender: FDA-Public Use
  Company Number: US-ELI_LILLY_AND_COMPANY-US201207003329

PATIENT
  Age: 38 Year
  Sex: Male

DRUGS (9)
  1. HUMALOG [Concomitant]
  2. NEXIUM [Concomitant]
  3. TRAMADOL HCL [Concomitant]
  4. CYMBALTA [Suspect]
     Dosage: 120 MG, QD, TWO 60 MG CAPSULES
  5. SYNTHROID [Concomitant]
  6. DIOVAN [Concomitant]
  7. NEURONTIN [Concomitant]
  8. JANUMET [Concomitant]
  9. ZYRTEC [Concomitant]

REACTIONS (2)
  - ROAD TRAFFIC ACCIDENT [None]
  - WRONG TECHNIQUE IN DRUG USAGE PROCESS [None]
